FAERS Safety Report 5830630-1 (Version None)
Quarter: 2008Q3

REPORT INFORMATION
  Report Type: 
  Country: None (occurrence: None)
  Receive Date: 20080801
  Receipt Date: 20070829
  Transmission Date: 20090109
  Serious: No
  Sender: FDA-Public Use
  Company Number: US-BRISTOL-MYERS SQUIBB COMPANY-13892369

PATIENT
  Sex: Female
  Weight: 82 kg

DRUGS (7)
  1. COUMADIN [Suspect]
     Indication: ATRIAL FIBRILLATION
     Route: 048
  2. AVAPRO [Concomitant]
  3. ATENOLOL [Concomitant]
  4. EFFEXOR [Concomitant]
  5. MAGNESIUM SULFATE [Concomitant]
  6. BIOTIN [Concomitant]
  7. VITAMIN B COMPLEX [Concomitant]

REACTIONS (1)
  - ALOPECIA [None]
